FAERS Safety Report 19179093 (Version 1)
Quarter: 2021Q2

REPORT INFORMATION
  Report Type: Spontaneous
  Country: CA (occurrence: CA)
  Receive Date: 20210426
  Receipt Date: 20210426
  Transmission Date: 20210717
  Serious: Yes (Hospitalization)
  Sender: FDA-Public Use
  Company Number: NVSC2021CA089150

PATIENT
  Age: 5 Year
  Sex: Male
  Weight: 7 kg

DRUGS (4)
  1. TOBRAMYCIN INJECTION USP [Suspect]
     Active Substance: TOBRAMYCIN
     Indication: PYELONEPHRITIS ACUTE
     Dosage: 36 MG, Q24H ( 1 EVERY 24 HOURS)
     Route: 042
  2. CEFTRIAXONE. [Suspect]
     Active Substance: CEFTRIAXONE
     Dosage: 350 MG, ONCE/SINGLE
     Route: 030
  3. CEFTRIAXONE. [Suspect]
     Active Substance: CEFTRIAXONE
     Indication: PRODUCT USED FOR UNKNOWN INDICATION
     Dosage: 540 MG, Q24H
     Route: 042
  4. AMPICILLIN [Suspect]
     Active Substance: AMPICILLIN
     Indication: PRODUCT USED FOR UNKNOWN INDICATION
     Dosage: 360 MG, Q6H
     Route: 042

REACTIONS (1)
  - Neutropenia [Unknown]
